FAERS Safety Report 4456107-6 (Version None)
Quarter: 2004Q3

REPORT INFORMATION
  Report Type: 
  Country: None (occurrence: None)
  Receive Date: 20040920
  Receipt Date: 20040903
  Transmission Date: 20050211
  Serious: Yes (Hospitalization, Other)
  Sender: FDA-Public Use
  Company Number: JP-2004-029569

PATIENT
  Age: 23 Year
  Sex: Female
  Weight: 53 kg

DRUGS (6)
  1. BETAFERON (INTERFERON BETA - 1B) INJECTION, 250UG [Suspect]
     Indication: MULTIPLE SCLEROSIS
     Dosage: 4 + 8 MIU, EVERY 2D, SUBCUTANEOUS
     Route: 058
     Dates: start: 20030210, end: 20030214
  2. BETAFERON (INTERFERON BETA - 1B) INJECTION, 250UG [Suspect]
     Indication: MULTIPLE SCLEROSIS
     Dosage: 4 + 8 MIU, EVERY 2D, SUBCUTANEOUS
     Route: 058
     Dates: start: 20030216, end: 20030417
  3. PREDNISOLONE [Concomitant]
  4. SELBEX (TEPRENONE) [Concomitant]
  5. ONE-ALPHA (ALFACALCIDOL) [Concomitant]
  6. GASTER (FAMOTIDINE) [Concomitant]

REACTIONS (4)
  - ASTHENIA [None]
  - CHRONIC INFLAMMATORY DEMYELINATING POLYRADICULONEUROPATHY [None]
  - HYPOAESTHESIA [None]
  - HYPOREFLEXIA [None]
